FAERS Safety Report 11029483 (Version 1)
Quarter: 2015Q2

REPORT INFORMATION
  Report Type: Spontaneous
  Country: JP (occurrence: JP)
  Receive Date: 20150415
  Receipt Date: 20150415
  Transmission Date: 20150821
  Serious: Yes (Other)
  Sender: FDA-Public Use
  Company Number: JP-BRISTOL-MYERS SQUIBB COMPANY-BMS-2015-004504

PATIENT
  Age: 61 Year
  Sex: Male
  Weight: 47 kg

DRUGS (5)
  1. ERBITUX [Suspect]
     Active Substance: CETUXIMAB
     Indication: OROPHARYNGEAL CANCER
     Dosage: 400 MG/M2, QWK.250MG/M2 ON 21OCT-05NOV2014:15DAYS.12NOV-10DEC2014:28DAYS
     Route: 041
     Dates: start: 20141008
  2. DOCETAXEL. [Suspect]
     Active Substance: DOCETAXEL
     Indication: OROPHARYNGEAL CANCER
     Dosage: 50 MG/M2, UNK
     Route: 041
     Dates: start: 20141023, end: 20141023
  3. CISPLATIN. [Suspect]
     Active Substance: CISPLATIN
     Indication: OROPHARYNGEAL CANCER
     Dosage: 60 MG/M2, UNK
     Route: 041
     Dates: start: 20141023, end: 20141023
  4. BETAMETHASONE [Suspect]
     Active Substance: BETAMETHASONE
     Indication: PRODUCT USED FOR UNKNOWN INDICATION
     Route: 065
  5. MINOCYCLINE [Suspect]
     Active Substance: MINOCYCLINE\MINOCYCLINE HYDROCHLORIDE
     Indication: PRODUCT USED FOR UNKNOWN INDICATION
     Route: 065

REACTIONS (9)
  - Neutropenia [Recovered/Resolved]
  - C-reactive protein increased [Unknown]
  - Dermatitis infected [Recovering/Resolving]
  - Pharyngeal haemorrhage [Unknown]
  - Staphylococcus test positive [Unknown]
  - Platelet count decreased [Recovered/Resolved]
  - Pyrexia [Unknown]
  - Eczema asteatotic [Recovering/Resolving]
  - White blood cell count decreased [Recovered/Resolved]

NARRATIVE: CASE EVENT DATE: 20141012
